FAERS Safety Report 9826163 (Version 2)
Quarter: 2014Q1

REPORT INFORMATION
  Report Type: Spontaneous
  Country: US (occurrence: None)
  Receive Date: 20131223
  Receipt Date: 20140228
  Transmission Date: 20141002
  Serious: Yes (Other)
  Sender: FDA-Public Use
  Company Number: 221593LEO

PATIENT
  Age: 67 Year
  Sex: Female

DRUGS (6)
  1. PICATO [Suspect]
     Indication: PRECANCEROUS SKIN LESION
     Dosage: (FOR 3 DAYS), TOPICAL
     Route: 061
     Dates: start: 20130512, end: 20130512
  2. CARNEX (EMOLLIENTS AND PROTECTIVES) [Concomitant]
  3. SINGULAIR (MONTELUKAST) 10MG [Concomitant]
  4. LEVOTHYROXINE (LEVOTHYROXINE) [Concomitant]
  5. DIOVAN (VALSARTAN) [Concomitant]
  6. PREVACID (LANSOPRAZOLE) [Concomitant]

REACTIONS (6)
  - Blood pressure increased [None]
  - Paraesthesia oral [None]
  - Swollen tongue [None]
  - Swelling [None]
  - Oedema mouth [None]
  - Incorrect drug administration duration [None]
